FAERS Safety Report 15204414 (Version 1)
Quarter: 2018Q4

REPORT INFORMATION
  Report Type: Spontaneous
  Country: US (occurrence: US)
  Receive Date: 20180726
  Receipt Date: 20180726
  Transmission Date: 20190204
  Serious: Yes (Other)
  Sender: FDA-Public Use
  Company Number: US-AMWAY-2018AMY00062

PATIENT
  Age: 44 Year
  Sex: Female
  Weight: 72.56 kg

DRUGS (3)
  1. NUTRILITE FOR FEMALE [Concomitant]
  2. ARTISTRY IDEAL RADIANCE UV PROTECT SPF 50 PLUS BROAD SPECTRUM SUNSCREEN [Suspect]
     Active Substance: OCTINOXATE\OCTISALATE\TITANIUM DIOXIDE\ZINC OXIDE
     Dosage: UNK UNK, ONCE
     Route: 061
     Dates: start: 20180705, end: 20180705
  3. VITAMIN C [Suspect]
     Active Substance: ASCORBIC ACID
     Dosage: UNK
     Dates: start: 20180705, end: 20180709

REACTIONS (9)
  - Dehydration [Recovering/Resolving]
  - Chemical burn [Recovering/Resolving]
  - Malaise [Recovering/Resolving]
  - Speech disorder [Recovering/Resolving]
  - Skin exfoliation [Recovering/Resolving]
  - Facial pain [Recovering/Resolving]
  - Feeling abnormal [Recovering/Resolving]
  - Hypophagia [Recovering/Resolving]
  - Hypersensitivity [Recovering/Resolving]

NARRATIVE: CASE EVENT DATE: 201807
